FAERS Safety Report 25038995 (Version 1)
Quarter: 2025Q1

REPORT INFORMATION
  Report Type: Report from Study
  Country: US (occurrence: US)
  Receive Date: 20250305
  Receipt Date: 20250305
  Transmission Date: 20250409
  Serious: Yes (Other)
  Sender: ABBVIE
  Company Number: US-ABBVIE-6153301

PATIENT
  Sex: Female

DRUGS (1)
  1. CREON [Suspect]
     Active Substance: PANCRELIPASE AMYLASE\PANCRELIPASE LIPASE\PANCRELIPASE PROTEASE
     Indication: Product used for unknown indication
     Route: 048
     Dates: start: 20240524

REACTIONS (4)
  - Cataract [Unknown]
  - Gastrointestinal microorganism overgrowth [Unknown]
  - Irritable bowel syndrome [Unknown]
  - Steatorrhoea [Not Recovered/Not Resolved]
